FAERS Safety Report 10368918 (Version 1)
Quarter: 2014Q3

REPORT INFORMATION
  Report Type: Spontaneous
  Country: BR (occurrence: BR)
  Receive Date: 20140807
  Receipt Date: 20140807
  Transmission Date: 20150326
  Serious: Yes (Other)
  Sender: FDA-Public Use
  Company Number: BR-ASTRAZENECA-2014SE55773

PATIENT
  Age: 48 Year
  Sex: Female
  Weight: 62.3 kg

DRUGS (2)
  1. ESOMEPRAZOLE 20 MG (MEDLEY MANUFACTURER) [Suspect]
     Active Substance: ESOMEPRAZOLE
     Indication: DUODENAL ULCER
     Route: 048
     Dates: start: 20140729, end: 20140729
  2. ESOMEPRAZOLE 20 MG (MEDLEY MANUFAC TURER) [Suspect]
     Active Substance: ESOMEPRAZOLE
     Indication: GASTRITIS
     Route: 048
     Dates: start: 20140729, end: 20140729

REACTIONS (7)
  - Hypersensitivity [Recovered/Resolved]
  - Dry mouth [None]
  - Tremor [None]
  - Blood pressure increased [Recovered/Resolved]
  - Hypoaesthesia [Recovered/Resolved]
  - Headache [Recovered/Resolved]
  - Dizziness [Recovered/Resolved]

NARRATIVE: CASE EVENT DATE: 20140729
